FAERS Safety Report 8443114-1 (Version None)
Quarter: 2012Q2

REPORT INFORMATION
  Report Type: 
  Country: None (occurrence: None)
  Receive Date: 20120615
  Receipt Date: 20120605
  Transmission Date: 20120825
  Serious: Yes (Other)
  Sender: FDA-Public Use
  Company Number: DE-ABBOTT-12P-062-0946459-00

PATIENT
  Age: 71 Year
  Sex: Male

DRUGS (3)
  1. BICALUTAMIDE [Concomitant]
     Indication: PRODUCT USED FOR UNKNOWN INDICATION
     Route: 065
     Dates: start: 20120524
  2. LEUPROLIDE ACETATE [Suspect]
     Indication: PROSTATE CANCER
     Route: 058
     Dates: start: 20111201
  3. FLUTAMIDE [Concomitant]
     Indication: ANTIANDROGEN THERAPY
     Route: 048

REACTIONS (3)
  - LYMPHOEDEMA [None]
  - NEOPLASM PROGRESSION [None]
  - OEDEMA [None]
